FAERS Safety Report 10040297 (Version 1)
Quarter: 2014Q1

REPORT INFORMATION
  Report Type: Spontaneous
  Country: US (occurrence: US)
  Receive Date: 20140327
  Receipt Date: 20140327
  Transmission Date: 20141002
  Serious: Yes (Hospitalization)
  Sender: FDA-Public Use
  Company Number: US-AMGEN-USASP2014021203

PATIENT
  Age: 66 Year
  Sex: Male
  Weight: 117.91 kg

DRUGS (8)
  1. ENBREL [Suspect]
     Indication: PSORIATIC ARTHROPATHY
     Dosage: 50 MG, 2 TIMES/WK
     Route: 058
     Dates: start: 1999, end: 20140317
  2. TYLENOL                            /00020001/ [Concomitant]
     Dosage: UNK
  3. METFORMIN [Concomitant]
     Dosage: UNK
  4. OMEPRAZOLE [Concomitant]
     Dosage: UNK
  5. GABAPENTIN [Concomitant]
     Dosage: UNK
  6. TERAZOSIN [Concomitant]
     Dosage: UNK
  7. DEPO-TESTOSTERONE [Concomitant]
     Dosage: UNK
  8. CLOBETASOL PROPRIONATE [Concomitant]
     Dosage: UNK

REACTIONS (3)
  - Pericardial effusion [Not Recovered/Not Resolved]
  - Dyspnoea exertional [Not Recovered/Not Resolved]
  - Weight increased [Unknown]
